FAERS Safety Report 5803533-6 (Version None)
Quarter: 2008Q2

REPORT INFORMATION
  Report Type: 
  Country: None (occurrence: None)
  Receive Date: 20080630
  Receipt Date: 20080409
  Transmission Date: 20081010
  Serious: Yes (Other)
  Sender: FDA-Public Use
  Company Number: PHEH2008US03624

PATIENT
  Age: 13 Year
  Sex: Female

DRUGS (1)
  1. EXJADE [Suspect]
     Dosage: 1000MG
     Dates: start: 20060601

REACTIONS (1)
  - RETINAL DISORDER [None]
